FAERS Safety Report 15611218 (Version 3)
Quarter: 2019Q2

REPORT INFORMATION
  Report Type: Spontaneous
  Country: IT (occurrence: IT)
  Receive Date: 20181113
  Receipt Date: 20190424
  Transmission Date: 20190711
  Serious: Yes (Hospitalization, Other)
  Sender: FDA-Public Use
  Company Number: IT-ACCORD-091251

PATIENT
  Sex: Female

DRUGS (7)
  1. HYDROXYCHLOROQUINE [Suspect]
     Active Substance: HYDROXYCHLOROQUINE
     Indication: IMMUNOSUPPRESSANT DRUG THERAPY
  2. METHYLPREDNISOLONE. [Concomitant]
     Active Substance: METHYLPREDNISOLONE
  3. RITUXIMAB. [Concomitant]
     Active Substance: RITUXIMAB
  4. CYCLOPHOSPHAMIDE/CYCLOPHOSPHAMIDE MONOHYDRATE [Concomitant]
     Dosage: PULSE
  5. AMPHOTERICIN B/AMPHOTERICIN B/LIPOSOME [Concomitant]
  6. MYCOPHENOLIC ACID. [Suspect]
     Active Substance: MYCOPHENOLIC ACID
     Indication: IMMUNOSUPPRESSANT DRUG THERAPY
  7. TACROLIMUS. [Suspect]
     Active Substance: TACROLIMUS
     Indication: IMMUNOSUPPRESSANT DRUG THERAPY

REACTIONS (11)
  - Pneumonia [Unknown]
  - Acute kidney injury [Unknown]
  - Headache [Unknown]
  - Drug intolerance [Unknown]
  - Pyrexia [Unknown]
  - Gastrointestinal disorder [Unknown]
  - Proteinuria [Recovering/Resolving]
  - Haematuria [Unknown]
  - Respiratory symptom [Unknown]
  - Nausea [Unknown]
  - Hypertransaminasaemia [Unknown]
